FAERS Safety Report 8983054 (Version 1)
Quarter: 2012Q4

REPORT INFORMATION
  Report Type: Report from Study
  Country: US (occurrence: US)
  Receive Date: 20121223
  Receipt Date: 20121223
  Transmission Date: 20130627
  Serious: Yes (Hospitalization)
  Sender: FDA-Public Use
  Company Number: US-JNJFOC-20121206157

PATIENT
  Sex: Female
  Weight: 74.84 kg

DRUGS (3)
  1. REMICADE [Suspect]
     Indication: RHEUMATOID ARTHRITIS
     Route: 042
     Dates: start: 201002, end: 201011
  2. LORATAB [Concomitant]
     Indication: RHEUMATOID ARTHRITIS
     Route: 048
     Dates: start: 201112, end: 201211
  3. LORATAB [Concomitant]
     Indication: RHEUMATOID ARTHRITIS
     Route: 048
     Dates: end: 201112

REACTIONS (4)
  - Abnormal weight gain [Recovered/Resolved]
  - Ankle fracture [Recovered/Resolved]
  - Procedural pain [Recovered/Resolved]
  - Arthralgia [Recovered/Resolved]
